FAERS Safety Report 7106200-4 (Version None)
Quarter: 2010Q4

REPORT INFORMATION
  Report Type: 
  Country: None (occurrence: None)
  Receive Date: 20101116
  Receipt Date: 20101104
  Transmission Date: 20110411
  Serious: Yes (Hospitalization, Other)
  Sender: FDA-Public Use
  Company Number: PHHO2010FR14218

PATIENT
  Sex: Male
  Weight: 80 kg

DRUGS (7)
  1. RAD 666 / RAD 001A [Suspect]
     Indication: CARCINOID TUMOUR
     Dosage: 10 MG, QD
     Route: 048
     Dates: start: 20100210, end: 20100913
  2. AFINITOR [Suspect]
     Indication: CARCINOID TUMOUR
     Dosage: DOUBLE BLIND
     Route: 048
  3. BLINDED NO TREATMENT RECEIVED NOMED [Suspect]
     Indication: CARCINOID TUMOUR
     Dosage: DOUBLE BLIND
     Route: 048
  4. PLACEBO [Suspect]
     Indication: CARCINOID TUMOUR
     Dosage: DOUBLE BLIND
     Route: 048
  5. SANDOSTATIN LAR [Concomitant]
     Indication: CARCINOID TUMOUR
     Dosage: 30 MG
     Dates: start: 20080229
  6. COAPROVEL [Concomitant]
     Indication: HYPERTENSION
  7. SMECTA [Concomitant]
     Indication: DIARRHOEA

REACTIONS (4)
  - CARCINOID TUMOUR [None]
  - DYSPNOEA EXERTIONAL [None]
  - LUNG DISORDER [None]
  - MALIGNANT NEOPLASM PROGRESSION [None]
